FAERS Safety Report 7577997-4 (Version None)
Quarter: 2011Q2

REPORT INFORMATION
  Report Type: 
  Country: None (occurrence: None)
  Receive Date: 20110628
  Receipt Date: 20110621
  Transmission Date: 20111010
  Serious: Yes (Other)
  Sender: FDA-Public Use
  Company Number: TN-ROCHE-784952

PATIENT
  Sex: Female
  Weight: 53 kg

DRUGS (2)
  1. RIBAVIRIN [Suspect]
     Dosage: DOSAGE AND FORM UNSPECIFIED. FREQUENCY: DAILY
     Route: 048
  2. PEGINTERFERON ALFA-2A [Suspect]
     Dosage: DOSAGE AND FORM UNSPECIFIED.
     Route: 058
     Dates: start: 20100626, end: 20100626

REACTIONS (1)
  - LUNG DISORDER [None]
